FAERS Safety Report 22115908 (Version 5)
Quarter: 2023Q2

REPORT INFORMATION
  Report Type: Spontaneous
  Country: US (occurrence: US)
  Receive Date: 20230320
  Receipt Date: 20230425
  Transmission Date: 20230721
  Serious: No
  Sender: FDA-Public Use
  Company Number: US-PFIZER INC-202300107337

PATIENT
  Age: 16 Year
  Sex: Male
  Weight: 68.934 kg

DRUGS (1)
  1. GENOTROPIN [Suspect]
     Active Substance: SOMATROPIN
     Indication: Growth hormone deficiency
     Dosage: 2.3 MG, DAILY

REACTIONS (2)
  - Product prescribing error [Unknown]
  - Device leakage [Unknown]

NARRATIVE: CASE EVENT DATE: 20230312
